FAERS Safety Report 5782893-9 (Version None)
Quarter: 2008Q2

REPORT INFORMATION
  Report Type: 
  Country: None (occurrence: None)
  Receive Date: 20080619
  Receipt Date: 20080610
  Transmission Date: 20081010
  Serious: Yes (Other)
  Sender: FDA-Public Use
  Company Number: 2008AP001488

PATIENT
  Age: 51 Year
  Sex: Female

DRUGS (12)
  1. PAROXETINE HCL [Suspect]
     Dates: start: 19990623
  2. AMITRIPTLINE HCL [Concomitant]
  3. HYDROXYZINE HCL [Concomitant]
  4. DIAZEPAM [Concomitant]
  5. VALPROATE SODIUM [Concomitant]
  6. EVENING PRIMROSE OIL (EVENING PRIMROSE OIL) [Concomitant]
  7. ALENDRONATE SODIUM [Concomitant]
  8. IMIPRAMINE [Concomitant]
  9. SIMVASTATIN [Concomitant]
  10. TAMOXIFEN CITRATE [Concomitant]
  11. TOLTERODINE TARTRATE [Concomitant]
  12. LANSOPRAZOLE [Concomitant]

REACTIONS (28)
  - ASTHENIA [None]
  - CONFUSIONAL STATE [None]
  - DEPRESSION [None]
  - DIZZINESS [None]
  - DRUG DEPENDENCE [None]
  - DRUG WITHDRAWAL SYNDROME [None]
  - DYSARTHRIA [None]
  - DYSPAREUNIA [None]
  - DYSPEPSIA [None]
  - EMOTIONAL DISORDER [None]
  - FAECAL INCONTINENCE [None]
  - FEELING ABNORMAL [None]
  - FEELING DRUNK [None]
  - GAIT DISTURBANCE [None]
  - HANGOVER [None]
  - HEADACHE [None]
  - HYPERTONIC BLADDER [None]
  - HYPOAESTHESIA ORAL [None]
  - LOSS OF CONTROL OF LEGS [None]
  - MALAISE [None]
  - MOOD SWINGS [None]
  - NAUSEA [None]
  - NYSTAGMUS [None]
  - PARAESTHESIA [None]
  - SEXUAL DYSFUNCTION [None]
  - SPEECH DISORDER [None]
  - TEARFULNESS [None]
  - URINARY INCONTINENCE [None]
